FAERS Safety Report 18100725 (Version 2)
Quarter: 2020Q3

REPORT INFORMATION
  Report Type: Report from Study
  Country: US (occurrence: US)
  Receive Date: 20200731
  Receipt Date: 20200817
  Transmission Date: 20201103
  Serious: Yes (Hospitalization)
  Sender: FDA-Public Use
  Company Number: US-ACTELION-A-NJ2019-197825

PATIENT
  Age: 76 Year
  Sex: Female
  Weight: 65.76 kg

DRUGS (2)
  1. OPSUMIT [Suspect]
     Active Substance: MACITENTAN
     Indication: PULMONARY ARTERIAL HYPERTENSION
     Dosage: 10 MG, QD
     Route: 048
     Dates: start: 201604
  2. WARFARIN [Concomitant]
     Active Substance: WARFARIN

REACTIONS (16)
  - Fall [Unknown]
  - Anaemia [Unknown]
  - Hypoaesthesia [Unknown]
  - Pain [Unknown]
  - Pain in extremity [Unknown]
  - Haemoglobin decreased [Recovering/Resolving]
  - Pneumonia [Unknown]
  - Head injury [Unknown]
  - Paraesthesia [Unknown]
  - Haematocrit decreased [Recovering/Resolving]
  - Dizziness [Unknown]
  - Rheumatoid arthritis [Unknown]
  - Cervical vertebral fracture [Unknown]
  - Dyspnoea exertional [Unknown]
  - Red blood cell count decreased [Recovering/Resolving]
  - International normalised ratio abnormal [Unknown]

NARRATIVE: CASE EVENT DATE: 20191021
